FAERS Safety Report 9099245 (Version 1)
Quarter: 2013Q1

REPORT INFORMATION
  Report Type: Spontaneous
  Country: US (occurrence: US)
  Receive Date: 20130214
  Receipt Date: 20130214
  Transmission Date: 20140127
  Serious: Yes (Death)
  Sender: FDA-Public Use
  Company Number: US-BANPHARM-20130728

PATIENT
  Age: 51 Year
  Sex: Female

DRUGS (7)
  1. IBUPROFEN UNKNOWN PRODUCT [Suspect]
     Route: 048
  2. ANTIDEPRESSENT (SSRI) [Suspect]
  3. METHOCARBAMOL [Suspect]
  4. ANGIOTENSIN-CONVERTING ENZYME INHIBITOR [Suspect]
  5. ANTICONVULSANT [Suspect]
  6. BENZODIAZEPINE [Suspect]
  7. DOXYCLINE [Suspect]

REACTIONS (3)
  - Death [Fatal]
  - Drug abuse [Fatal]
  - Cardio-respiratory arrest [Fatal]
